FAERS Safety Report 8274434-1 (Version None)
Quarter: 2012Q2

REPORT INFORMATION
  Report Type: 
  Country: None (occurrence: None)
  Receive Date: 20120411
  Receipt Date: 20120327
  Transmission Date: 20120825
  Serious: Yes (Hospitalization)
  Sender: FDA-Public Use
  Company Number: US-ROCHE-1053707

PATIENT
  Age: 81 Year
  Sex: Female

DRUGS (3)
  1. VINCRISTINE [Suspect]
     Indication: PRODUCT USED FOR UNKNOWN INDICATION
     Route: 065
  2. MABTHERA [Suspect]
     Indication: CHRONIC LYMPHOCYTIC LEUKAEMIA
     Route: 042
     Dates: start: 20111118, end: 20120116
  3. DEXAMETHASONE [Suspect]
     Indication: CHRONIC LYMPHOCYTIC LEUKAEMIA
     Route: 042
     Dates: start: 20111118, end: 20120116

REACTIONS (7)
  - HERPES SIMPLEX [None]
  - ENTERITIS [None]
  - ELECTROLYTE IMBALANCE [None]
  - FEBRILE NEUTROPENIA [None]
  - URINARY TRACT INFECTION FUNGAL [None]
  - SMALL INTESTINAL OBSTRUCTION [None]
  - PANCYTOPENIA [None]
